FAERS Safety Report 5471245-7 (Version None)
Quarter: 2007Q3

REPORT INFORMATION
  Report Type: 
  Country: None (occurrence: None)
  Receive Date: 20070928
  Receipt Date: 20070925
  Transmission Date: 20080115
  Serious: Yes (Disabling)
  Sender: FDA-Public Use
  Company Number: ZA-ASTRAZENECA-2007SE04872

PATIENT
  Age: 14510 Day
  Sex: Male
  Weight: 78 kg

DRUGS (3)
  1. CRESTOR [Suspect]
     Indication: HYPERCHOLESTEROLAEMIA
     Route: 048
     Dates: start: 20070601, end: 20070830
  2. ECOTRIN [Concomitant]
  3. TRITACE [Concomitant]

REACTIONS (1)
  - ARTHRALGIA [None]
